FAERS Safety Report 10613062 (Version 1)
Quarter: 2014Q4

REPORT INFORMATION
  Report Type: Spontaneous
  Country: US (occurrence: US)
  Receive Date: 20141127
  Receipt Date: 20141127
  Transmission Date: 20150529
  Serious: Yes (Other)
  Sender: FDA-Public Use
  Company Number: US-ABBVIE-14K-163-1311523-00

PATIENT
  Age: 57 Year
  Sex: Female
  Weight: 92.16 kg

DRUGS (11)
  1. CYMBALTA [Concomitant]
     Active Substance: DULOXETINE HYDROCHLORIDE
     Indication: DEPRESSION
  2. OXAZEPAM. [Concomitant]
     Active Substance: OXAZEPAM
     Indication: INSOMNIA
  3. AMPICILLIN [Concomitant]
     Active Substance: AMPICILLIN
     Indication: PROPHYLAXIS
  4. ESTROGEL [Suspect]
     Active Substance: ESTRADIOL
     Indication: HOT FLUSH
  5. TESTOSTERONE. [Suspect]
     Active Substance: TESTOSTERONE
     Indication: BLOOD TESTOSTERONE DECREASED
     Route: 065
     Dates: start: 20140827, end: 20141114
  6. AMPICILLIN [Concomitant]
     Active Substance: AMPICILLIN
     Indication: CYSTITIS
  7. LOSARTAN AND HYDROCHLOROTHIAZIDE [Concomitant]
     Active Substance: HYDROCHLOROTHIAZIDE\LOSARTAN POTASSIUM
     Indication: HYPERTENSION
  8. TESTOSTERONE. [Suspect]
     Active Substance: TESTOSTERONE
     Indication: HOT FLUSH
  9. COREG [Concomitant]
     Active Substance: CARVEDILOL
     Indication: CARDIOMYOPATHY
  10. HUMIRA [Suspect]
     Active Substance: ADALIMUMAB
     Indication: RHEUMATOID ARTHRITIS
     Route: 058
     Dates: start: 201303, end: 20141031
  11. ESTROGEL [Suspect]
     Active Substance: ESTRADIOL
     Indication: BLOOD OESTROGEN DECREASED
     Route: 065
     Dates: start: 20140827, end: 20141114

REACTIONS (12)
  - Thrombosis [Not Recovered/Not Resolved]
  - Dyspnoea [Not Recovered/Not Resolved]
  - Pain in extremity [Not Recovered/Not Resolved]
  - Blood oestrogen decreased [Unknown]
  - Muscle spasms [Not Recovered/Not Resolved]
  - Foot deformity [Not Recovered/Not Resolved]
  - Pain in extremity [Recovering/Resolving]
  - Pulmonary embolism [Not Recovered/Not Resolved]
  - Blood testosterone increased [Unknown]
  - Skin discolouration [Recovering/Resolving]
  - Exostosis [Not Recovered/Not Resolved]
  - Peripheral swelling [Not Recovered/Not Resolved]

NARRATIVE: CASE EVENT DATE: 201407
